FAERS Safety Report 13718423 (Version 3)
Quarter: 2020Q3

REPORT INFORMATION
  Report Type: Spontaneous
  Country: GR (occurrence: GR)
  Receive Date: 20170705
  Receipt Date: 20200908
  Transmission Date: 20201102
  Serious: Yes (Life-Threatening, Hospitalization)
  Sender: FDA-Public Use
  Company Number: PHHY2017GR093936

PATIENT
  Age: 77 Year
  Sex: Female

DRUGS (1)
  1. AMOXICILLIN,CLAVULANIC ACID [Suspect]
     Active Substance: AMOXICILLIN\CLAVULANIC ACID
     Indication: PRODUCT USED FOR UNKNOWN INDICATION
     Dosage: UNK
     Route: 048

REACTIONS (6)
  - Cardio-respiratory arrest [Recovered/Resolved]
  - Kounis syndrome [Recovering/Resolving]
  - Dyspnoea [Recovered/Resolved]
  - Pruritus [Recovered/Resolved]
  - Shock [Recovering/Resolving]
  - Urticaria [Recovering/Resolving]
